FAERS Safety Report 16420951 (Version 1)
Quarter: 2019Q3

REPORT INFORMATION
  Report Type: Spontaneous
  Country: US (occurrence: US)
  Receive Date: 20190611
  Receipt Date: 20190611
  Transmission Date: 20191004
  Serious: Yes (Hospitalization)
  Sender: FDA-Public Use
  Company Number: None

PATIENT
  Age: 61 Year
  Sex: Female
  Weight: 54 kg

DRUGS (1)
  1. CIPROFLOXACIN HCI ORAL TABLET 500 MG [Suspect]
     Active Substance: CIPROFLOXACIN HYDROCHLORIDE
     Indication: CYSTITIS
     Dosage: ?          QUANTITY:1 TABLET(S);?
     Route: 048
     Dates: start: 20181222, end: 20181229

REACTIONS (8)
  - Neuropathy peripheral [None]
  - Ocular icterus [None]
  - Muscular weakness [None]
  - Hunger [None]
  - Skin exfoliation [None]
  - Oedema peripheral [None]
  - Pain [None]
  - Coordination abnormal [None]

NARRATIVE: CASE EVENT DATE: 20190102
